FAERS Safety Report 5467905-4 (Version None)
Quarter: 2007Q3

REPORT INFORMATION
  Report Type: 
  Country: None (occurrence: None)
  Receive Date: 20070926
  Receipt Date: 20070921
  Transmission Date: 20080115
  Serious: Yes (Other)
  Sender: FDA-Public Use
  Company Number: ES-JNJFOC-20070904767

PATIENT
  Sex: Male

DRUGS (4)
  1. RISPERIDONE [Suspect]
     Indication: PSYCHOTIC DISORDER
     Route: 030
  2. DEPAKENE [Concomitant]
  3. REXER FLAS [Concomitant]
  4. AMISULPIRIDE [Concomitant]

REACTIONS (2)
  - HAND DEFORMITY [None]
  - TREMOR [None]
